FAERS Safety Report 9435366 (Version 1)
Quarter: 2013Q3

REPORT INFORMATION
  Report Type: Spontaneous
  Country: US (occurrence: US)
  Receive Date: 20130801
  Receipt Date: 20130801
  Transmission Date: 20140515
  Serious: Yes (Hospitalization)
  Sender: FDA-Public Use
  Company Number: US-GLAXOSMITHKLINE-A1035161A

PATIENT
  Age: 55 Year
  Sex: Male

DRUGS (8)
  1. ADVAIR [Suspect]
     Indication: ASTHMA
     Dosage: 1PUFF TWICE PER DAY
     Route: 055
     Dates: start: 2005, end: 20130725
  2. NEXIUM [Concomitant]
  3. PEPCID [Concomitant]
  4. SINGULAIR [Concomitant]
  5. FENTANYL PATCH [Concomitant]
  6. OXYCODONE [Concomitant]
  7. LUNESTA [Concomitant]
  8. CLONAZEPAM [Concomitant]

REACTIONS (5)
  - Cardiac enzymes increased [Not Recovered/Not Resolved]
  - Vomiting [Not Recovered/Not Resolved]
  - Nausea [Not Recovered/Not Resolved]
  - Constipation [Not Recovered/Not Resolved]
  - Headache [Not Recovered/Not Resolved]
